FAERS Safety Report 7937180-7 (Version None)
Quarter: 2011Q4

REPORT INFORMATION
  Report Type: 
  Country: None (occurrence: None)
  Receive Date: 20111123
  Receipt Date: 20111121
  Transmission Date: 20120403
  Serious: Yes (Hospitalization, Congenital Anomaly)
  Sender: FDA-Public Use
  Company Number: US-GLAXOSMITHKLINE-A0884623A

PATIENT
  Sex: Male

DRUGS (4)
  1. PAXIL [Suspect]
     Indication: DEPRESSION
     Dosage: 20MG TWICE PER DAY
     Route: 048
  2. WELLBUTRIN XL [Concomitant]
     Route: 064
  3. KLONOPIN [Concomitant]
     Dates: start: 20071017
  4. PAROXETINE HCL [Suspect]
     Indication: DEPRESSION
     Dosage: 20MG TWICE PER DAY
     Route: 064

REACTIONS (12)
  - PULMONARY VALVE STENOSIS CONGENITAL [None]
  - HEART VALVE INCOMPETENCE [None]
  - LEFT VENTRICLE OUTFLOW TRACT OBSTRUCTION [None]
  - HEPATIC FUNCTION ABNORMAL [None]
  - RENAL FAILURE CHRONIC [None]
  - RENAL DYSPLASIA [None]
  - CONGENITAL HEPATIC FIBROSIS [None]
  - VESICOURETERIC REFLUX [None]
  - CONGENITAL AORTIC STENOSIS [None]
  - FOETAL EXPOSURE DURING PREGNANCY [None]
  - CONGENITAL AORTIC ANOMALY [None]
  - BICUSPID AORTIC VALVE [None]
